FAERS Safety Report 19508846 (Version 1)
Quarter: 2021Q3

REPORT INFORMATION
  Report Type: Report from Study
  Country: US (occurrence: US)
  Receive Date: 20210708
  Receipt Date: 20210708
  Transmission Date: 20211014
  Serious: Yes (Hospitalization, Other)
  Sender: FDA-Public Use
  Company Number: US-TAKEDA-2021TUS039403

PATIENT
  Age: 71 Year
  Sex: Female

DRUGS (20)
  1. TEDUGLUTIDE [Suspect]
     Active Substance: TEDUGLUTIDE
     Indication: SHORT-BOWEL SYNDROME
     Dosage: 5.0 MILLIGRAM, (0.05MG/KG), 4/WEEK
     Route: 065
     Dates: start: 20140414
  2. TEDUGLUTIDE [Suspect]
     Active Substance: TEDUGLUTIDE
     Dosage: 0.5 MILLIGRAM, (0.5MG/KG), 3/WEEK
     Route: 065
     Dates: start: 20181008
  3. TEDUGLUTIDE [Suspect]
     Active Substance: TEDUGLUTIDE
     Dosage: 0.5 MILLIGRAM, (0.5MG/KG), 4/WEEK
     Route: 065
     Dates: start: 20190326
  4. TEDUGLUTIDE [Suspect]
     Active Substance: TEDUGLUTIDE
     Dosage: 5.0 MILLIGRAM, (0.5MG/KG), 4/WEEK
     Route: 065
     Dates: start: 2019
  5. CREON [Concomitant]
     Active Substance: PANCRELIPASE AMYLASE\PANCRELIPASE LIPASE\PANCRELIPASE PROTEASE
     Indication: PANCREATIC ENZYMES
     Dosage: 12000 UNITS, UPTO 10?12 A DAY
     Route: 048
  6. TEDUGLUTIDE [Suspect]
     Active Substance: TEDUGLUTIDE
     Dosage: 0.5 MILLIGRAM, (0.5MG/KG), 4/WEEK
     Route: 065
     Dates: start: 20190326
  7. TEDUGLUTIDE [Suspect]
     Active Substance: TEDUGLUTIDE
     Dosage: 5.0 MILLIGRAM, (0.5MG/KG), 4/WEEK
     Route: 065
     Dates: start: 2019
  8. TEDUGLUTIDE [Suspect]
     Active Substance: TEDUGLUTIDE
     Indication: SHORT-BOWEL SYNDROME
     Dosage: 5.0 MILLIGRAM, (0.05MG/KG), 4/WEEK
     Route: 065
     Dates: start: 20140414
  9. TEDUGLUTIDE [Suspect]
     Active Substance: TEDUGLUTIDE
     Dosage: 5.0 MILLIGRAM, (0.5MG/KG), 4/WEEK
     Route: 065
     Dates: start: 2019
  10. BOTULINUM TOXIN TYPE A [Concomitant]
     Active Substance: BOTULINUM TOXIN TYPE A
     Indication: URINARY INCONTINENCE
     Dosage: 200 UNITS, UNK
     Route: 058
     Dates: start: 20190320
  11. TEDUGLUTIDE [Suspect]
     Active Substance: TEDUGLUTIDE
     Indication: SHORT-BOWEL SYNDROME
     Dosage: 5.0 MILLIGRAM, (0.05MG/KG), 4/WEEK
     Route: 065
     Dates: start: 20140414
  12. TEDUGLUTIDE [Suspect]
     Active Substance: TEDUGLUTIDE
     Dosage: 0.5 MILLIGRAM, (0.5MG/KG), 3/WEEK
     Route: 065
     Dates: start: 20181008
  13. DIPHENOXYLATE/ATROPINE [Concomitant]
     Active Substance: ATROPINE\DIPHENOXYLATE
     Indication: DIARRHOEA
     Dosage: 2 MILLIGRAM, PRN
     Route: 048
     Dates: start: 20190326
  14. TEDUGLUTIDE [Suspect]
     Active Substance: TEDUGLUTIDE
     Indication: SHORT-BOWEL SYNDROME
     Dosage: 5.0 MILLIGRAM, (0.05MG/KG), 4/WEEK
     Route: 065
     Dates: start: 20140414
  15. TEDUGLUTIDE [Suspect]
     Active Substance: TEDUGLUTIDE
     Dosage: 0.5 MILLIGRAM, (0.5MG/KG), 3/WEEK
     Route: 065
     Dates: start: 20181008
  16. TEDUGLUTIDE [Suspect]
     Active Substance: TEDUGLUTIDE
     Dosage: 0.5 MILLIGRAM, (0.5MG/KG), 4/WEEK
     Route: 065
     Dates: start: 20190326
  17. TEDUGLUTIDE [Suspect]
     Active Substance: TEDUGLUTIDE
     Dosage: 0.5 MILLIGRAM, (0.5MG/KG), 3/WEEK
     Route: 065
     Dates: start: 20181008
  18. TEDUGLUTIDE [Suspect]
     Active Substance: TEDUGLUTIDE
     Dosage: 0.5 MILLIGRAM, (0.5MG/KG), 4/WEEK
     Route: 065
     Dates: start: 20190326
  19. TEDUGLUTIDE [Suspect]
     Active Substance: TEDUGLUTIDE
     Dosage: 5.0 MILLIGRAM, (0.5MG/KG), 4/WEEK
     Route: 065
     Dates: start: 2019
  20. LOPERAMIDE [Concomitant]
     Active Substance: LOPERAMIDE
     Indication: DIARRHOEA
     Dosage: 15 UNK, PER EACH MEAL
     Route: 048
     Dates: start: 20190323

REACTIONS (1)
  - Vascular device infection [Recovered/Resolved]

NARRATIVE: CASE EVENT DATE: 20200904
